FAERS Safety Report 8340444-9 (Version None)
Quarter: 2012Q2

REPORT INFORMATION
  Report Type: 
  Country: None (occurrence: None)
  Receive Date: 20120507
  Receipt Date: 20120501
  Transmission Date: 20120825
  Serious: Yes (Other)
  Sender: FDA-Public Use
  Company Number: US-ABBOTT-12P-163-0932099-00

PATIENT
  Sex: Male

DRUGS (2)
  1. ANDROGEL [Suspect]
     Indication: BLOOD TESTOSTERONE DECREASED
     Dates: start: 20111201, end: 20120201
  2. ANDROGEL [Suspect]
     Dates: start: 20120201

REACTIONS (2)
  - HEARING IMPAIRED [None]
  - SPONTANEOUS PENILE ERECTION [None]
